FAERS Safety Report 10149782 (Version 1)
Quarter: 2014Q2

REPORT INFORMATION
  Report Type: Spontaneous
  Country: DE (occurrence: DE)
  Receive Date: 20140502
  Receipt Date: 20140502
  Transmission Date: 20141212
  Serious: Yes (Disabling)
  Sender: FDA-Public Use
  Company Number: DE-JNJFOC-20140416839

PATIENT
  Age: 20 Year
  Sex: Female
  Weight: 58 kg

DRUGS (3)
  1. TOPIRAMATE [Suspect]
     Indication: EPILEPSY
     Route: 048
     Dates: start: 201109, end: 2014
  2. LACOSAMIDE [Suspect]
     Indication: EPILEPSY
     Route: 048
     Dates: start: 201112
  3. LACOSAMIDE [Suspect]
     Indication: EPILEPSY
     Route: 048
     Dates: end: 2014

REACTIONS (1)
  - Retinal vascular occlusion [Recovering/Resolving]
